FAERS Safety Report 9330549 (Version 1)
Quarter: 2013Q2

REPORT INFORMATION
  Report Type: Report from Study
  Country: US (occurrence: US)
  Receive Date: 20130605
  Receipt Date: 20130605
  Transmission Date: 20140414
  Serious: Yes (Other)
  Sender: FDA-Public Use
  Company Number: PHEH2013US003636

PATIENT
  Age: 50 Year
  Sex: Female
  Weight: 55.78 kg

DRUGS (11)
  1. AFINITOR [Suspect]
     Dosage: 10 MG, QD
     Route: 048
  2. MORTIN [Concomitant]
     Dosage: 600 MG
     Route: 048
  3. VICODIN [Concomitant]
     Dosage: 500 MG
  4. ZOMETA [Concomitant]
  5. MULTI-VIT [Concomitant]
     Route: 048
  6. CALCIUM [Concomitant]
     Dosage: 500 MG
     Route: 048
  7. TYLENOL [Concomitant]
     Dosage: 325 MG
  8. AROMASIN [Concomitant]
     Dosage: 25 MG
     Route: 048
  9. POTASSIUM [Concomitant]
     Dosage: 25 MG
  10. LOSARTAN HCT [Concomitant]
  11. ADVIL PM                           /05810501/ [Concomitant]
     Dosage: 200 MG

REACTIONS (10)
  - Pericardial effusion [Unknown]
  - Thrombosis [Unknown]
  - Heart rate increased [Unknown]
  - Gastritis [Unknown]
  - Epistaxis [Unknown]
  - Cough [Unknown]
  - Decreased appetite [Unknown]
  - Headache [Unknown]
  - Arthralgia [Unknown]
  - Blood pressure increased [Unknown]
